FAERS Safety Report 25469671 (Version 1)
Quarter: 2025Q2

REPORT INFORMATION
  Report Type: Spontaneous
  Country: US (occurrence: None)
  Receive Date: 20250623
  Receipt Date: 20250623
  Transmission Date: 20250716
  Serious: Yes (Hospitalization)
  Sender: FDA-CTU
  Company Number: None

PATIENT
  Age: 58 Year
  Sex: Female
  Weight: 72 kg

DRUGS (4)
  1. DSUVIA [Suspect]
     Active Substance: SUFENTANIL
     Indication: Oral surgery
     Route: 060
     Dates: start: 20230628, end: 20230628
  2. VERSED [Suspect]
     Active Substance: MIDAZOLAM HYDROCHLORIDE
  3. PHENERGAN [Suspect]
     Active Substance: PROMETHAZINE HYDROCHLORIDE
  4. DEXAMETHASONE [Suspect]
     Active Substance: DEXAMETHASONE

REACTIONS (10)
  - Contraindicated product administered [None]
  - Premature recovery from anaesthesia [None]
  - Procedural complication [None]
  - Craniofacial fracture [None]
  - Legal problem [None]
  - Victim of crime [None]
  - Circumstance or information capable of leading to medication error [None]
  - Withdrawal syndrome [None]
  - Pain in extremity [None]
  - Headache [None]

NARRATIVE: CASE EVENT DATE: 20230628
